FAERS Safety Report 6969505-3 (Version None)
Quarter: 2010Q3

REPORT INFORMATION
  Report Type: 
  Country: None (occurrence: None)
  Receive Date: 20100907
  Receipt Date: 20100907
  Transmission Date: 20110219
  Serious: Yes (Hospitalization)
  Sender: FDA-Public Use
  Company Number: None

PATIENT
  Age: 20 Year
  Sex: Male
  Weight: 95 kg

DRUGS (2)
  1. METHOTREXATE [Suspect]
  2. MERCAPTOPURINE [Suspect]

REACTIONS (2)
  - HEPATIC CIRRHOSIS [None]
  - SERUM FERRITIN INCREASED [None]
